APPROVED DRUG PRODUCT: PARSABIV
Active Ingredient: ETELCALCETIDE
Strength: 2.5MG/0.5ML (2.5MG/0.5ML)
Dosage Form/Route: SOLUTION;INTRAVENOUS
Application: N208325 | Product #001
Applicant: KAI PHARMACEUTICALS INC A WHOLLY OWNED SUBSIDIARY OF AMGEN INC
Approved: Feb 7, 2017 | RLD: Yes | RS: Yes | Type: RX

PATENTS:
Patent 8999932 | Expires: Feb 7, 2031
Patent 9701712 | Expires: Jul 29, 2030
Patent 11959486 | Expires: Jun 27, 2034
Patent 10344765 | Expires: Jun 27, 2034
Patent 9278995 | Expires: Jul 29, 2030
Patent 11162500 | Expires: Jun 27, 2034
Patent 9820938 | Expires: Jun 27, 2034
Patent 8377880 | Expires: Jul 29, 2030